FAERS Safety Report 8822547 (Version 6)
Quarter: 2013Q3

REPORT INFORMATION
  Report Type: Spontaneous
  Country: US (occurrence: US)
  Receive Date: 20121003
  Receipt Date: 20130725
  Transmission Date: 20140515
  Serious: Yes (Other)
  Sender: FDA-Public Use
  Company Number: US-009507513-1208USA006592

PATIENT
  Age: 70 Year
  Sex: Female

DRUGS (3)
  1. PEGINTRON [Suspect]
     Indication: HEPATITIS C
     Dosage: REDIPEN
     Dates: start: 20120812, end: 20130223
  2. REBETOL [Suspect]
     Dosage: UNK
     Route: 048
     Dates: start: 20120813, end: 20130223
  3. VICTRELIS [Suspect]
     Indication: HEPATITIS C
     Dosage: UNK
     Route: 048
     Dates: start: 20120909, end: 20130223

REACTIONS (22)
  - Transfusion [Unknown]
  - Insomnia [Unknown]
  - White blood cell count decreased [Unknown]
  - Headache [Unknown]
  - Malaise [Unknown]
  - Pyrexia [Unknown]
  - Constipation [Unknown]
  - Depression [Unknown]
  - Pyrexia [Unknown]
  - Malaise [Unknown]
  - Pruritus [Unknown]
  - Rash [Unknown]
  - Depression [Unknown]
  - Skin reaction [Unknown]
  - Constipation [Unknown]
  - Fatigue [Unknown]
  - Alopecia [Unknown]
  - Asthenia [Unknown]
  - Dizziness [Unknown]
  - Fatigue [Not Recovered/Not Resolved]
  - Asthenia [Not Recovered/Not Resolved]
  - Alopecia [Not Recovered/Not Resolved]
